FAERS Safety Report 7667654-8 (Version None)
Quarter: 2011Q3

REPORT INFORMATION
  Report Type: 
  Country: None (occurrence: None)
  Receive Date: 20110806
  Receipt Date: 20110311
  Transmission Date: 20111222
  Serious: No
  Sender: FDA-Public Use
  Company Number: US-ABBOTT-11P-163-0710776-00

PATIENT
  Sex: Male
  Weight: 83.99 kg

DRUGS (4)
  1. NIASPAN [Suspect]
     Indication: LOW DENSITY LIPOPROTEIN DECREASED
     Dates: start: 20110308
  2. WARFARIN SODIUM [Concomitant]
     Indication: PRODUCT USED FOR UNKNOWN INDICATION
  3. 3 UNKNOWN MEDICATIONS [Concomitant]
     Indication: BLOOD PRESSURE
  4. TYLENOL-500 [Concomitant]
     Indication: PRODUCT USED FOR UNKNOWN INDICATION

REACTIONS (3)
  - FLUSHING [None]
  - DIARRHOEA [None]
  - PARAESTHESIA [None]
